FAERS Safety Report 17387086 (Version 1)
Quarter: 2020Q1

REPORT INFORMATION
  Report Type: Spontaneous
  Country: US (occurrence: US)
  Receive Date: 20200206
  Receipt Date: 20200206
  Transmission Date: 20200409
  Serious: Yes (Other)
  Sender: FDA-Public Use
  Company Number: US-ALLERMED LABORATORIES, INC.-2079931

PATIENT
  Age: 21 Year
  Sex: Male

DRUGS (42)
  1. MUCOR MIX [Suspect]
     Active Substance: MUCOR CIRCINELLOIDES F. LUSITANICUS\MUCOR PLUMBEUS
     Route: 058
     Dates: start: 20190712
  2. RIVER/RED BIRCH POLLEN [Suspect]
     Active Substance: BETULA NIGRA POLLEN
     Route: 058
     Dates: start: 20190712
  3. WESTERN RAGWEED MIX [Suspect]
     Active Substance: AMBROSIA ACANTHICARPA POLLEN\AMBROSIA PSILOSTACHYA POLLEN
     Route: 058
     Dates: start: 20190712
  4. ANIMAL ALLERGENS, FEATHER MIX [Suspect]
     Active Substance: ANAS PLATYRHYNCHOS FEATHER\ANSER ANSER FEATHER\GALLUS GALLUS FEATHER
     Route: 058
     Dates: start: 20190712
  5. STANDARDIZED MITE DERMATOPHAGOIDES PTERONYSSINUS [Suspect]
     Active Substance: DERMATOPHAGOIDES PTERONYSSINUS
     Route: 058
     Dates: start: 20190712
  6. MOLDS, RUSTS AND SMUTS CLADOSPORIUM SPHAEROSPERMUM [Suspect]
     Active Substance: CLADOSPORIUM SPHAEROSPERMUM
     Route: 058
     Dates: start: 20190712
  7. BOX ELDER POLLEN [Suspect]
     Active Substance: ACER NEGUNDO POLLEN
     Route: 058
     Dates: start: 20190712
  8. POLLENS - TREES, PECAN CARYA CARYA ILLINOENSIS [Suspect]
     Active Substance: CARYA ILLINOINENSIS POLLEN
     Route: 058
     Dates: start: 20190712
  9. POLLENS - WEEDS AND GARDEN PLANTS, LAMBS QUARTERS CHENOPODIUM ALBUM [Suspect]
     Active Substance: CHENOPODIUM ALBUM POLLEN
     Route: 058
     Dates: start: 20190712
  10. POLLENS - WEEDS AND GARDEN PLANTS, PIGWEED, ROUGH REDROOT AMARANTHUS RETROFLEXUS [Suspect]
     Active Substance: AMARANTHUS RETROFLEXUS POLLEN
     Route: 058
     Dates: start: 20190712
  11. MOLDS, RUSTS AND SMUTS, ASPERGILLUS FUMIGATUS [Suspect]
     Active Substance: ASPERGILLUS FUMIGATUS
     Route: 058
     Dates: start: 20190712
  12. DRECHSLERA SPICIFERA [Suspect]
     Active Substance: COCHLIOBOLUS SPICIFER
     Route: 058
     Dates: start: 20190712
  13. MOLDS, RUSTS AND SMUTS, EPICOCCUM NIGRUM [Suspect]
     Active Substance: EPICOCCUM NIGRUM
     Route: 058
     Dates: start: 20190712
  14. PENICILLIUM CHRYSOGENUM [Suspect]
     Active Substance: PENICILLIUM CHRYSOGENUM VAR. CHRYSOGENUM
     Route: 058
     Dates: start: 20190712
  15. EASTERN WHITE PINE POLLEN [Suspect]
     Active Substance: PINUS STROBUS POLLEN
     Route: 058
     Dates: start: 20190712
  16. POLLENS - WEEDS AND GARDEN PLANTS, RUSSIAN THISTLE SALSOLA KALI [Suspect]
     Active Substance: SALSOLA KALI POLLEN
     Route: 058
     Dates: start: 20190712
  17. AUREOBASIDIUM PULLULANS [Suspect]
     Active Substance: AUREOBASIDIUM PULLULANS VAR. PULLUTANS
     Route: 058
     Dates: start: 20190712
  18. POLLENS - TREES, CEDAR, RED JUNIPERUS VIRGINIANA [Suspect]
     Active Substance: JUNIPERUS VIRGINIANA POLLEN
     Route: 058
     Dates: start: 20190712
  19. STANDARDIZED CAT HAIR [Suspect]
     Active Substance: FELIS CATUS HAIR
     Route: 058
     Dates: start: 20190712
  20. STANDARDIZED TIMOTHY GRASS [Suspect]
     Active Substance: PHLEUM PRATENSE POLLEN
     Route: 058
     Dates: start: 20190712
  21. POLLENS - TREES, ELM, AMERICAN ULMUS AMERICANA [Suspect]
     Active Substance: ULMUS AMERICANA POLLEN
     Route: 058
     Dates: start: 20190712
  22. RED MULBERRY POLLEN [Suspect]
     Active Substance: MORUS RUBRA POLLEN
     Route: 058
     Dates: start: 20190712
  23. WHITE OAK POLLEN [Suspect]
     Active Substance: QUERCUS ALBA POLLEN
     Route: 058
     Dates: start: 20190712
  24. STANDARDIZED BERMUDA GRASS [Suspect]
     Active Substance: CYNODON DACTYLON POLLEN
     Indication: SEASONAL ALLERGY
     Route: 058
     Dates: start: 20190712
  25. POLLENS - GRASSES, BAHIA GRASS PASPALUM NOTATUM [Suspect]
     Active Substance: PASPALUM NOTATUM POLLEN
     Route: 058
     Dates: start: 20190712
  26. POLLENS - GRASSES, JOHNSON GRASS SORGHUM HALEPENSE [Suspect]
     Active Substance: SORGHUM HALEPENSE POLLEN
     Route: 058
     Dates: start: 20190712
  27. STANDARDIZED MITE DERMATOPHAGOIDES FARINAE [Suspect]
     Active Substance: DERMATOPHAGOIDES FARINAE
     Route: 058
     Dates: start: 20190712
  28. PHOMA BETAE [Suspect]
     Active Substance: PLEOSPORA BETAE
     Route: 058
     Dates: start: 20190712
  29. POLLENS - TREES, GUM, SWEET LIQUIDAMBAR STYRACIFLUA [Suspect]
     Active Substance: LIQUIDAMBAR STYRACIFLUA POLLEN
     Route: 058
     Dates: start: 20190712
  30. POLLENS - WEEDS AND GARDEN PLANTS, COCKLEBUR XANTHIUM STRUMARIUM [Suspect]
     Active Substance: XANTHIUM STRUMARIUM POLLEN
     Route: 058
     Dates: start: 20190712
  31. POLLENS - WEEDS AND GARDEN PLANTS, PLANTAIN, ENGLISH PLANTAGO LANCEOLATA [Suspect]
     Active Substance: PLANTAGO LANCEOLATA POLLEN
     Route: 058
     Dates: start: 20190712
  32. ANIMAL ALLERGENS, HORSE EPITHELIA EQUUS CABALLUS [Suspect]
     Active Substance: EQUUS CABALLUS SKIN
     Route: 058
     Dates: start: 20190712
  33. INSECTS (WHOLE BODY) COCKROACH MIX [Suspect]
     Active Substance: BLATELLA GERMANICA\PERIPLANETA AMERICANA
     Route: 058
     Dates: start: 20190712
  34. POLLENS - TREES, ASH, WHITE FRAXINUS AMERICANA [Suspect]
     Active Substance: FRAXINUS AMERICANA POLLEN
     Route: 058
     Dates: start: 20190712
  35. POLLENS - WEEDS AND GARDEN PLANTS, SAGEBRUSH, MUGWORT ARTEMISIA VULGARIS [Suspect]
     Active Substance: ARTEMISIA VULGARIS POLLEN
     Route: 058
     Dates: start: 20190712
  36. ANIMAL ALLERGENS, CATTLE EPITHELIA BOS TAURUS [Suspect]
     Active Substance: BOS TAURUS SKIN
     Route: 058
     Dates: start: 20190712
  37. GUINEA PIG EPITHELIA [Suspect]
     Active Substance: CAVIA PORCELLUS SKIN
     Route: 058
     Dates: start: 20190712
  38. ANIMAL ALLERGENS, DOG EPITHELIA CANIS FAMILIARIS [Suspect]
     Active Substance: CANIS LUPUS FAMILIARIS SKIN
     Route: 058
     Dates: start: 20190712
  39. MOLDS, RUSTS AND SMUTS, ALTERNARIA TENUIS (ALTERNATA) [Suspect]
     Active Substance: ALTERNARIA ALTERNATA
     Route: 058
     Dates: start: 20190712
  40. POLLENS - TREES, COTTONWOOD, COMMON POPULUS DELTOIDES [Suspect]
     Active Substance: POPULUS DELTOIDES POLLEN
     Route: 058
     Dates: start: 20190712
  41. POLLENS - TREES, SYCAMORE, AMERICAN (EASTERN) PLATANUS OCCIDENTALLIS [Suspect]
     Active Substance: PLATANUS OCCIDENTALIS POLLEN
     Route: 058
     Dates: start: 20190712
  42. POLLENS - WEEDS, DOCK/SORREL MIX [Suspect]
     Active Substance: RUMEX ACETOSELLA POLLEN\RUMEX CRISPUS POLLEN
     Route: 058
     Dates: start: 20190712

REACTIONS (3)
  - Anaphylactic reaction [Recovered/Resolved]
  - Local reaction [Unknown]
  - Urticaria [Unknown]

NARRATIVE: CASE EVENT DATE: 20200118
